FAERS Safety Report 5877575-9 (Version None)
Quarter: 2008Q3

REPORT INFORMATION
  Report Type: 
  Country: None (occurrence: None)
  Receive Date: 20080911
  Receipt Date: 20080904
  Transmission Date: 20090109
  Serious: Yes (Death, Life-Threatening, Hospitalization)
  Sender: FDA-Public Use
  Company Number: CA-CELGENEUS-028-C5013-08020718

PATIENT
  Sex: Female
  Weight: 62.5 kg

DRUGS (6)
  1. REVLIMID [Suspect]
     Indication: NON-HODGKIN'S LYMPHOMA
     Route: 048
     Dates: start: 20070926, end: 20080209
  2. VANCOMYCIN HYDROCHLORIDE [Concomitant]
     Indication: NEUTROPENIA
     Route: 065
     Dates: start: 20080101, end: 20080101
  3. FLUCONAZOLE [Concomitant]
     Indication: NEUTROPENIA
     Route: 065
     Dates: start: 20080101, end: 20080101
  4. TOBRAMYCIN [Concomitant]
     Indication: NEUTROPENIA
     Route: 065
     Dates: start: 20080101, end: 20080101
  5. ANCEF [Concomitant]
     Indication: DRUG USE FOR UNKNOWN INDICATION
     Route: 065
     Dates: start: 20080101, end: 20080101
  6. ACYCLOVIR [Concomitant]
     Indication: NEUTROPENIA
     Route: 065
     Dates: start: 20080101, end: 20080101

REACTIONS (1)
  - ACUTE LEUKAEMIA [None]
